FAERS Safety Report 24781618 (Version 1)
Quarter: 2024Q4

REPORT INFORMATION
  Report Type: Report from Study
  Country: DE (occurrence: DE)
  Receive Date: 20241227
  Receipt Date: 20241227
  Transmission Date: 20250114
  Serious: Yes (Other)
  Sender: UCB
  Company Number: DE-UCBSA-2024067333

PATIENT
  Sex: Male
  Weight: 67 kg

DRUGS (1)
  1. FENFLURAMINE HYDROCHLORIDE [Suspect]
     Active Substance: FENFLURAMINE HYDROCHLORIDE
     Indication: Product used for unknown indication
     Dosage: UNK

REACTIONS (2)
  - Epilepsy [Unknown]
  - Skin laceration [Recovered/Resolved]

NARRATIVE: CASE EVENT DATE: 20241026
